FAERS Safety Report 6442555-1 (Version None)
Quarter: 2009Q4

REPORT INFORMATION
  Report Type: 
  Country: None (occurrence: None)
  Receive Date: 20091117
  Receipt Date: 20091111
  Transmission Date: 20100525
  Serious: Yes (Other)
  Sender: FDA-Public Use
  Company Number: US-BRACCO-003003

PATIENT
  Sex: Male

DRUGS (5)
  1. PROHANCE [Suspect]
     Indication: NUCLEAR MAGNETIC RESONANCE IMAGING
     Route: 042
     Dates: start: 20081103, end: 20081103
  2. TRENTAL [Concomitant]
     Dates: start: 20090101
  3. DEPO-MEDROL [Concomitant]
     Indication: MUSCULOSKELETAL STIFFNESS
     Dates: start: 20081217, end: 20081217
  4. PREDNISONE [Concomitant]
     Indication: MUSCULOSKELETAL STIFFNESS
     Route: 048
     Dates: start: 20081218, end: 20081224
  5. GLUCOSAMINE/CHONDROITIN [Concomitant]

REACTIONS (1)
  - NEPHROGENIC SYSTEMIC FIBROSIS [None]
